FAERS Safety Report 18305182 (Version 4)
Quarter: 2020Q4

REPORT INFORMATION
  Report Type: Spontaneous
  Country: CA (occurrence: CA)
  Receive Date: 20200924
  Receipt Date: 20201202
  Transmission Date: 20210113
  Serious: Yes (Other)
  Sender: FDA-Public Use
  Company Number: CA-PFIZER INC-2020339107

PATIENT
  Age: 62 Year
  Sex: Female

DRUGS (8)
  1. ELIQUIS [Concomitant]
     Active Substance: APIXABAN
     Dosage: UNK
     Route: 065
  2. VITAMIN B12 [Concomitant]
     Active Substance: CYANOCOBALAMIN
     Dosage: UNK
     Route: 065
  3. FENTANYL. [Concomitant]
     Active Substance: FENTANYL
     Dosage: UNK
     Route: 061
  4. XELJANZ [Suspect]
     Active Substance: TOFACITINIB CITRATE
     Indication: PSORIATIC ARTHROPATHY
     Dosage: 5 MG, 1X/DAY (OD)
     Route: 048
  5. XELJANZ [Suspect]
     Active Substance: TOFACITINIB CITRATE
     Dosage: 5 MG, 2X/DAY (LABELLED)
     Route: 048
  6. XELJANZ [Suspect]
     Active Substance: TOFACITINIB CITRATE
     Dosage: 5 MG, 1X/DAY
     Route: 048
     Dates: start: 20200914, end: 20201026
  7. PROLIA [Concomitant]
     Active Substance: DENOSUMAB
     Dosage: EVERY (Q) 6 MONTHS
     Route: 065
  8. CLOXIN [CLOXACILLIN SODIUM] [Concomitant]
     Indication: WOUND
     Dosage: UNK (FOR 10 DAYS)
     Dates: start: 20200827

REACTIONS (16)
  - Dizziness [Unknown]
  - Blood cholesterol increased [Unknown]
  - Condition aggravated [Unknown]
  - Depression [Unknown]
  - Decreased appetite [Unknown]
  - Crying [Unknown]
  - Arthritis [Unknown]
  - Sleep disorder [Unknown]
  - Pain in extremity [Unknown]
  - Varicose vein [Unknown]
  - Off label use [Unknown]
  - Psoriasis [Not Recovered/Not Resolved]
  - Peripheral swelling [Unknown]
  - Intercepted medication error [Unknown]
  - Headache [Unknown]
  - Infection [Not Recovered/Not Resolved]

NARRATIVE: CASE EVENT DATE: 20200914
